FAERS Safety Report 6556862-5 (Version None)
Quarter: 2010Q1

REPORT INFORMATION
  Report Type: 
  Country: None (occurrence: None)
  Receive Date: 20100128
  Receipt Date: 20100121
  Transmission Date: 20100710
  Serious: Yes (Death, Hospitalization, Disabling, Other)
  Sender: FDA-Public Use
  Company Number: PHEH2009US15848

PATIENT
  Sex: Male
  Weight: 101.6 kg

DRUGS (5)
  1. EXJADE [Suspect]
     Indication: MYELODYSPLASTIC SYNDROME
     Dosage: 2000 MG, QD
     Route: 048
     Dates: start: 20080901, end: 20090803
  2. CYCLOSPORINE [Suspect]
     Indication: MYELODYSPLASTIC SYNDROME
     Dosage: 300 MG, QD
     Dates: start: 20070801, end: 20090521
  3. FENTANYL [Concomitant]
     Dosage: 12 MCG Q 72 HOURS TRANSDERMALLY
  4. HYDROCODONE [Concomitant]
     Dosage: UNK
  5. ATIVAN [Concomitant]
     Dosage: UNK

REACTIONS (48)
  - ACTIVATED PARTIAL THROMBOPLASTIN TIME PROLONGED [None]
  - ASTHENIA [None]
  - BIOPSY SKIN ABNORMAL [None]
  - BLOOD BILIRUBIN INCREASED [None]
  - BLOOD CALCIUM DECREASED [None]
  - BLOOD CREATINE PHOSPHOKINASE MB DECREASED [None]
  - BLOOD CREATININE INCREASED [None]
  - BLOOD GASES ABNORMAL [None]
  - BLOOD IMMUNOGLOBULIN A DECREASED [None]
  - BLOOD IMMUNOGLOBULIN M DECREASED [None]
  - BLOOD PH INCREASED [None]
  - BLOOD TEST ABNORMAL [None]
  - BLOOD UREA INCREASED [None]
  - BLOOD UREA NITROGEN/CREATININE RATIO INCREASED [None]
  - CANDIDIASIS [None]
  - CELLULITIS [None]
  - CONSTIPATION [None]
  - DECREASED APPETITE [None]
  - DEHYDRATION [None]
  - DYSPHONIA [None]
  - EPISTAXIS [None]
  - FATIGUE [None]
  - FEELING ABNORMAL [None]
  - GLOMERULAR FILTRATION RATE DECREASED [None]
  - HAEMATURIA [None]
  - HAEMORRHAGE INTRACRANIAL [None]
  - HYPERGLYCAEMIA [None]
  - HYPOXIA [None]
  - LEUKAEMIA CUTIS [None]
  - MALAISE [None]
  - MASS [None]
  - MYELOFIBROSIS [None]
  - NUTRITIONAL CONDITION ABNORMAL [None]
  - OROPHARYNGEAL PAIN [None]
  - PAIN IN EXTREMITY [None]
  - PCO2 DECREASED [None]
  - PNEUMONIA [None]
  - PO2 DECREASED [None]
  - PROTHROMBIN TIME PROLONGED [None]
  - PUPIL FIXED [None]
  - PYODERMA GANGRENOSUM [None]
  - PYREXIA [None]
  - RENAL FAILURE [None]
  - SKIN LESION [None]
  - SOMNOLENCE [None]
  - SPLENOMEGALY [None]
  - UNRESPONSIVE TO STIMULI [None]
  - VOCAL CORD PARALYSIS [None]
